FAERS Safety Report 5201729-8 (Version None)
Quarter: 2007Q1

REPORT INFORMATION
  Report Type: 
  Country: None (occurrence: None)
  Receive Date: 20070104
  Receipt Date: 20060306
  Transmission Date: 20070707
  Serious: Yes (Hospitalization)
  Sender: FDA-Public Use
  Company Number: DSA_27853_2006

PATIENT
  Age: 91 Year
  Sex: Female

DRUGS (4)
  1. ENALAPRIL MALEATE [Suspect]
     Indication: ESSENTIAL HYPERTENSION
     Dosage: 5 MG QD PO
     Route: 048
     Dates: start: 20050725, end: 20050804
  2. ASPIRIN [Suspect]
     Indication: CEREBRAL ARTERY EMBOLISM
     Dosage: 100 MG QD PO
     Route: 048
     Dates: start: 20050725
  3. PLAVIX [Concomitant]
  4. NITRODERM [Concomitant]

REACTIONS (3)
  - DRUG INTERACTION [None]
  - HYPOTENSION [None]
  - RENAL FAILURE ACUTE [None]
